FAERS Safety Report 26104040 (Version 2)
Quarter: 2025Q4

REPORT INFORMATION
  Report Type: Report from Study
  Country: US (occurrence: US)
  Receive Date: 20251129
  Receipt Date: 20251211
  Transmission Date: 20260117
  Serious: Yes (Death, Hospitalization, Other)
  Sender: IPSEN BIOPHARMACEUTICALS, INC.
  Company Number: US-IPSEN Group, Research and Development-2025-26664

PATIENT
  Age: 59 Year
  Sex: Female

DRUGS (2)
  1. ONIVYDE [Suspect]
     Active Substance: IRINOTECAN HYDROCHLORIDE
     Indication: Pancreatic carcinoma
     Route: 042
     Dates: start: 20251001
  2. ONIVYDE [Suspect]
     Active Substance: IRINOTECAN HYDROCHLORIDE
     Route: 042
     Dates: start: 20251006, end: 20251201

REACTIONS (35)
  - Death [Fatal]
  - Intestinal obstruction [Unknown]
  - Haematochezia [Unknown]
  - Dehydration [Unknown]
  - Cholestasis [Unknown]
  - Vomiting [Unknown]
  - Nausea [Unknown]
  - Diarrhoea [Unknown]
  - Dyspepsia [Unknown]
  - Fatigue [Unknown]
  - Asthenia [Unknown]
  - Eructation [Unknown]
  - Oropharyngeal discomfort [Unknown]
  - Throat irritation [Unknown]
  - Dysphonia [Unknown]
  - Genital discomfort [Unknown]
  - Paranoia [Unknown]
  - Apathy [Unknown]
  - Dizziness [Unknown]
  - Gastrooesophageal reflux disease [Unknown]
  - Hypotension [Unknown]
  - Fungal infection [Unknown]
  - Hiccups [Unknown]
  - Weight decreased [Recovering/Resolving]
  - Initial insomnia [Unknown]
  - Hyperchlorhydria [Unknown]
  - Fatigue [Unknown]
  - Confusional state [Unknown]
  - Stoma site haemorrhage [Unknown]
  - Faeces hard [Unknown]
  - Oropharyngeal pain [Unknown]
  - Increased viscosity of upper respiratory secretion [Unknown]
  - Gastrointestinal sounds abnormal [Unknown]
  - Abdominal discomfort [Unknown]
  - Vomiting [Unknown]

NARRATIVE: CASE EVENT DATE: 20250101
